FAERS Safety Report 7276253-1 (Version None)
Quarter: 2011Q1

REPORT INFORMATION
  Report Type: 
  Country: None (occurrence: None)
  Receive Date: 20110204
  Receipt Date: 20110127
  Transmission Date: 20110831
  Serious: Yes (Other)
  Sender: FDA-Public Use
  Company Number: DE-CEPHALON-2011000482

PATIENT
  Sex: Female

DRUGS (1)
  1. MODAFINIL [Suspect]
     Indication: SOMNOLENCE
     Route: 048
     Dates: start: 20100301, end: 20110123

REACTIONS (3)
  - SWOLLEN TONGUE [None]
  - ADVERSE DRUG REACTION [None]
  - TONGUE DISCOLOURATION [None]
